FAERS Safety Report 19477025 (Version 1)
Quarter: 2021Q2

REPORT INFORMATION
  Report Type: Spontaneous
  Country: IT (occurrence: IT)
  Receive Date: 20210630
  Receipt Date: 20210630
  Transmission Date: 20210717
  Serious: Yes (Hospitalization)
  Sender: FDA-Public Use
  Company Number: IT-ACCORD-229796

PATIENT
  Age: 44 Year
  Sex: Female

DRUGS (3)
  1. COMIRNATY [Concomitant]
     Active Substance: TOZINAMERAN
     Indication: COVID-19 IMMUNISATION
     Dosage: 30 MICROGRAM
     Route: 030
     Dates: start: 20210505, end: 20210505
  2. PACLITAXEL ACCORD [Suspect]
     Active Substance: PACLITAXEL
     Indication: ENDOMETRIAL ADENOCARCINOMA
     Dosage: 1 DOSAGE FORM
     Route: 042
     Dates: start: 20201201, end: 20210506
  3. CARBOPLATIN SANDOZ [Suspect]
     Active Substance: CARBOPLATIN
     Indication: ENDOMETRIAL ADENOCARCINOMA
     Dosage: 1 DOSAGE FORM
     Route: 042
     Dates: start: 20201201, end: 20210506

REACTIONS (5)
  - Renal colic [Recovering/Resolving]
  - Renal pain [Recovering/Resolving]
  - Arthralgia [Recovering/Resolving]
  - Asthenia [Recovering/Resolving]
  - Vomiting [Recovering/Resolving]

NARRATIVE: CASE EVENT DATE: 20210506
